FAERS Safety Report 16146115 (Version 1)
Quarter: 2019Q2

REPORT INFORMATION
  Report Type: Spontaneous
  Country: CL (occurrence: CL)
  Receive Date: 20190402
  Receipt Date: 20190402
  Transmission Date: 20190711
  Serious: Yes (Other)
  Sender: FDA-Public Use
  Company Number: CL-PROVELL PHARMACEUTICALS-2065106

PATIENT
  Age: 40 Year
  Sex: Female

DRUGS (2)
  1. EUTHYROX [Suspect]
     Active Substance: LEVOTHYROXINE SODIUM
  2. EUTHYROX [Suspect]
     Active Substance: LEVOTHYROXINE SODIUM
     Indication: HYPOTHYROIDISM

REACTIONS (16)
  - Feeling hot [None]
  - Pain [None]
  - Bone pain [None]
  - Temperature intolerance [None]
  - Paraesthesia [None]
  - Affect lability [None]
  - Headache [None]
  - Feeling of despair [None]
  - Fatigue [None]
  - Blood cholesterol increased [None]
  - Somnolence [None]
  - Suicidal ideation [Recovering/Resolving]
  - Pain in extremity [None]
  - Malaise [None]
  - Asthenia [None]
  - Social avoidant behaviour [None]
